FAERS Safety Report 17259091 (Version 3)
Quarter: 2020Q1

REPORT INFORMATION
  Report Type: Spontaneous
  Country: DK (occurrence: DK)
  Receive Date: 20200110
  Receipt Date: 20200213
  Transmission Date: 20200409
  Serious: Yes (Life-Threatening)
  Sender: FDA-Public Use
  Company Number: DK-MYLANLABS-2019M1111826

PATIENT
  Age: 67 Year
  Sex: Female
  Weight: 85 kg

DRUGS (6)
  1. ATORVASTATIN [Suspect]
     Active Substance: ATORVASTATIN
     Indication: BLOOD CHOLESTEROL ABNORMAL
     Dosage: STRENGTH: 20 MG TAKING AT EVENING/NIGHT;
  2. MOMETASONE [Concomitant]
     Active Substance: MOMETASONE
     Indication: HYPERSENSITIVITY
     Dosage: 21.5 MILLIGRAM
     Route: 065
     Dates: start: 201812
  3. ATORVASTATIN [Suspect]
     Active Substance: ATORVASTATIN
     Dosage: STRENGTH: 20 MG TAKING AT EVENING/NIGHT
     Route: 048
     Dates: start: 20190802, end: 20190813
  4. LOSARTAN. [Concomitant]
     Active Substance: LOSARTAN
     Indication: BLOOD PRESSURE MANAGEMENT
     Dosage: 100 MILLIGRAM
     Route: 048
  5. PANTOPRAZOLE [Concomitant]
     Active Substance: PANTOPRAZOLE
     Indication: ABDOMINAL PAIN UPPER
     Dosage: 40 MILLIGRAM
     Route: 048
  6. CITALOPRAM [Concomitant]
     Active Substance: CITALOPRAM HYDROBROMIDE
     Indication: DEPRESSION
     Dosage: 40 MILLIGRAM
     Route: 048
     Dates: start: 2004

REACTIONS (7)
  - Gastrooesophageal reflux disease [Unknown]
  - Taste disorder [Unknown]
  - Eructation [Unknown]
  - Epigastric discomfort [Unknown]
  - Product taste abnormal [Unknown]
  - Nausea [Unknown]
  - Abdominal pain upper [Unknown]

NARRATIVE: CASE EVENT DATE: 20190804
